FAERS Safety Report 9426635 (Version 1)
Quarter: 2013Q3

REPORT INFORMATION
  Report Type: Report from Study
  Country: US (occurrence: US)
  Receive Date: 20130730
  Receipt Date: 20130730
  Transmission Date: 20140515
  Serious: Yes (Death)
  Sender: FDA-Public Use
  Company Number: US-US-EMD SERONO, INC.-7226300

PATIENT
  Age: 53 Year
  Sex: Male

DRUGS (5)
  1. REBIF [Suspect]
     Indication: RELAPSING-REMITTING MULTIPLE SCLEROSIS
     Route: 058
     Dates: start: 20100726
  2. DETROL LA [Concomitant]
     Indication: URINARY INCONTINENCE
  3. BACLOFEN [Concomitant]
     Indication: MUSCLE SPASTICITY
  4. AMANTADINE [Concomitant]
     Indication: FATIGUE
  5. PROZAC [Concomitant]
     Indication: DEPRESSION

REACTIONS (1)
  - Death [Fatal]
